FAERS Safety Report 6558260-7 (Version None)
Quarter: 2010Q1

REPORT INFORMATION
  Report Type: 
  Country: None (occurrence: None)
  Receive Date: 20100126
  Receipt Date: 20100114
  Transmission Date: 20100710
  Serious: Yes (Hospitalization, Other)
  Sender: FDA-Public Use
  Company Number: 100121-0000083

PATIENT
  Age: 4 Year
  Sex: Female

DRUGS (7)
  1. ELSPAR [Suspect]
     Indication: B-CELL TYPE ACUTE LEUKAEMIA
  2. VINCRISTINE [Suspect]
     Indication: CHEMOTHERAPY
  3. DEXAMETHASONE [Suspect]
     Indication: CHEMOTHERAPY
  4. CYTARABINE [Suspect]
     Indication: CHEMOTHERAPY
  5. CYCLOPHOSPHAMIDE [Suspect]
     Indication: CHEMOTHERAPY
  6. METHOTREXATE [Suspect]
     Indication: CHEMOTHERAPY
  7. MERCAPTOPURINE [Suspect]
     Indication: CHEMOTHERAPY

REACTIONS (3)
  - HYPERGLYCAEMIA [None]
  - PANCREATIC PSEUDOCYST [None]
  - PANCREATITIS [None]
